FAERS Safety Report 5559662-8 (Version None)
Quarter: 2007Q4

REPORT INFORMATION
  Report Type: 
  Country: None (occurrence: None)
  Receive Date: 20071214
  Receipt Date: 20071011
  Transmission Date: 20080405
  Serious: No
  Sender: FDA-Public Use
  Company Number: US-ABBOTT-07P-163-0420403-00

PATIENT
  Sex: Female
  Weight: 131.81 kg

DRUGS (2)
  1. HUMIRA [Suspect]
     Indication: RHEUMATOID ARTHRITIS
     Route: 058
     Dates: start: 20040101, end: 20070701
  2. HUMIRA [Suspect]
     Route: 058
     Dates: start: 20070901

REACTIONS (2)
  - HIATUS HERNIA [None]
  - MALAISE [None]
